FAERS Safety Report 5074611-7 (Version None)
Quarter: 2006Q3

REPORT INFORMATION
  Report Type: 
  Country: None (occurrence: None)
  Receive Date: 20060803
  Receipt Date: 20060724
  Transmission Date: 20061208
  Serious: Yes (Other)
  Sender: FDA-Public Use
  Company Number: 2006086058

PATIENT
  Sex: Male

DRUGS (2)
  1. DIABINESE [Suspect]
     Indication: DRUG USE FOR UNKNOWN INDICATION
  2. ASPIRIN [Concomitant]

REACTIONS (10)
  - FEELING ABNORMAL [None]
  - HIP ARTHROPLASTY [None]
  - INCORRECT DOSE ADMINISTERED [None]
  - LOSS OF CONSCIOUSNESS [None]
  - NERVE INJURY [None]
  - PAIN [None]
  - PROCEDURAL COMPLICATION [None]
  - SCIATIC NERVE INJURY [None]
  - SPINAL DISORDER [None]
  - TREATMENT NONCOMPLIANCE [None]
